FAERS Safety Report 13462205 (Version 3)
Quarter: 2017Q3

REPORT INFORMATION
  Report Type: Report from Study
  Country: US (occurrence: US)
  Receive Date: 20170420
  Receipt Date: 20170824
  Transmission Date: 20171127
  Serious: Yes (Death)
  Sender: FDA-Public Use
  Company Number: US-SA-2017SA068397

PATIENT
  Age: 53 Year
  Sex: Male

DRUGS (13)
  1. SEROQUEL [Concomitant]
     Active Substance: QUETIAPINE FUMARATE
     Dosage: 1-2 QHS PRN?QTY: 60
     Route: 065
  2. ZANTAC [Concomitant]
     Active Substance: RANITIDINE HYDROCHLORIDE
     Dosage: 1 PO Q AM STARTING O?QTY: 14
     Route: 048
     Dates: start: 2017, end: 2017
  3. ZYRTEC [Concomitant]
     Active Substance: CETIRIZINE HYDROCHLORIDE
     Dosage: 1 PO Q AM STARTING O?QTY: 14
     Route: 048
     Dates: start: 2017, end: 2017
  4. NORCO [Concomitant]
     Active Substance: ACETAMINOPHEN\HYDROCODONE BITARTRATE
     Dosage: DOSE: 7.5-325?QTY: 120 EACH
     Route: 065
     Dates: start: 2017, end: 2017
  5. PREDNISONE. [Concomitant]
     Active Substance: PREDNISONE
     Dosage: 3 PO QAMX2 DAYS?QTY: 12
     Route: 048
  6. TYSABRI [Concomitant]
     Active Substance: NATALIZUMAB
     Route: 065
  7. LEMTRADA [Suspect]
     Active Substance: ALEMTUZUMAB
     Indication: MULTIPLE SCLEROSIS
     Route: 041
     Dates: start: 20170403, end: 20170407
  8. ANDROGEL [Concomitant]
     Active Substance: TESTOSTERONE
     Route: 065
  9. DETROL LA [Concomitant]
     Active Substance: TOLTERODINE TARTRATE
     Dosage: DETROL LA CAPSULE, EXTENDED RELEASE
     Route: 065
     Dates: start: 2017, end: 2017
  10. SOMA [Concomitant]
     Active Substance: CARISOPRODOL
     Dosage: QTY: 60
     Route: 048
  11. ACYCLOVIR. [Concomitant]
     Active Substance: ACYCLOVIR
     Dosage: TAKE 1 CAPSULE TWICE?QUANTITY: 120
     Route: 065
     Dates: start: 2017, end: 2017
  12. DURAGESIC [Concomitant]
     Active Substance: FENTANYL
     Dosage: 1Q72H?QTY: 10 EACH
     Route: 065
     Dates: start: 2017, end: 2017
  13. KLONOPIN [Concomitant]
     Active Substance: CLONAZEPAM
     Dosage: QTY: 90?1/2 PO BID AND 2QH
     Route: 048

REACTIONS (5)
  - Malaise [Unknown]
  - Restlessness [Unknown]
  - Completed suicide [Fatal]
  - Asphyxia [Fatal]
  - Insomnia [Unknown]

NARRATIVE: CASE EVENT DATE: 20170407
